FAERS Safety Report 25526047 (Version 2)
Quarter: 2025Q3

REPORT INFORMATION
  Report Type: Spontaneous
  Country: AU (occurrence: AU)
  Receive Date: 20250707
  Receipt Date: 20250904
  Transmission Date: 20251020
  Serious: Yes (Life-Threatening, Hospitalization)
  Sender: ELI LILLY AND COMPANY
  Company Number: AU-ELI_LILLY_AND_COMPANY-AU202507000537

PATIENT
  Age: 55 Year
  Sex: Male
  Weight: 100.4 kg

DRUGS (2)
  1. MOUNJARO [Suspect]
     Active Substance: TIRZEPATIDE
     Indication: Weight control
     Dosage: 2.5 MG, WEEKLY (1/W)
     Route: 058
     Dates: start: 20250516, end: 20250630
  2. ALLOPURINOL [Concomitant]
     Active Substance: ALLOPURINOL
     Indication: Gout
     Dosage: UNK UNK, UNKNOWN
     Route: 065

REACTIONS (7)
  - Sepsis [Recovered/Resolved]
  - Rash [Recovered/Resolved]
  - Gout [Recovering/Resolving]
  - Autoimmune hepatitis [Recovering/Resolving]
  - Pancreatitis [Recovering/Resolving]
  - Pneumonia [Recovered/Resolved]
  - Blood sodium decreased [Unknown]

NARRATIVE: CASE EVENT DATE: 20250522
